FAERS Safety Report 6290866-5 (Version None)
Quarter: 2009Q3

REPORT INFORMATION
  Report Type: 
  Country: None (occurrence: None)
  Receive Date: 20090723
  Receipt Date: 20090723
  Transmission Date: 20100115
  Serious: Yes (Hospitalization)
  Sender: FDA-Public Use
  Company Number: None

PATIENT
  Sex: Female
  Weight: 97.5 kg

DRUGS (3)
  1. FLUOROURACIL [Suspect]
     Dates: start: 20090706
  2. CYCLOPHOSPHAMIDE [Suspect]
     Dates: start: 20090706
  3. ELLENCE [Suspect]
     Dates: start: 20090706

REACTIONS (4)
  - METASTASES TO LARGE INTESTINE [None]
  - METASTASES TO OVARY [None]
  - NEUTROPHIL COUNT DECREASED [None]
  - WHITE BLOOD CELL COUNT DECREASED [None]
